FAERS Safety Report 7260621-8 (Version None)
Quarter: 2011Q1

REPORT INFORMATION
  Report Type: 
  Country: None (occurrence: None)
  Receive Date: 20110130
  Receipt Date: 20101110
  Transmission Date: 20110831
  Serious: No
  Sender: FDA-Public Use
  Company Number: US-ABBOTT-10P-163-0684746-00

PATIENT
  Sex: Male
  Weight: 107.14 kg

DRUGS (2)
  1. ISONIAZID [Concomitant]
     Indication: TUBERCULIN TEST POSITIVE
     Dates: start: 20101109
  2. HUMIRA [Suspect]
     Indication: PSORIASIS
     Dates: start: 20101109

REACTIONS (2)
  - PAIN [None]
  - ARTHRALGIA [None]
